FAERS Safety Report 7110984-9 (Version None)
Quarter: 2010Q4

REPORT INFORMATION
  Report Type: 
  Country: None (occurrence: None)
  Receive Date: 20101118
  Receipt Date: 20091027
  Transmission Date: 20110411
  Serious: No
  Sender: FDA-Public Use
  Company Number: US-TEVA-213414USA

PATIENT

DRUGS (2)
  1. ALBUTEROL SULFATE AUTOHALER [Suspect]
     Route: 055
  2. LEVOSALBUTAMOL [Concomitant]
     Indication: DYSPNOEA

REACTIONS (2)
  - DRUG INEFFECTIVE [None]
  - DYSPNOEA [None]
